FAERS Safety Report 7910438-3 (Version None)
Quarter: 2011Q4

REPORT INFORMATION
  Report Type: 
  Country: None (occurrence: None)
  Receive Date: 20111111
  Receipt Date: 20111028
  Transmission Date: 20120403
  Serious: Yes (Death)
  Sender: FDA-Public Use
  Company Number: US-WATSON-2009-09412

PATIENT

DRUGS (7)
  1. FENTANYL-50 [Suspect]
     Indication: BACK PAIN
     Dosage: 1 PATCH Q 72 HOURS
     Route: 062
     Dates: start: 20091029, end: 20091103
  2. FENTANYL-50 [Suspect]
     Indication: PAIN
  3. LYRICA [Suspect]
     Indication: PAIN
     Dosage: 1 TABLET, QPM
     Route: 048
     Dates: start: 20091010
  4. ZOLPIDEM [Suspect]
     Indication: INSOMNIA
     Dosage: 1 TABLET, DAILY
     Route: 048
     Dates: start: 20091027
  5. OXYCONTIN [Suspect]
     Indication: PAIN
     Dosage: 1 TABLET, TID
     Route: 048
     Dates: end: 20090301
  6. OXYCODONE HCL AND ACETAMINOPHEN [Suspect]
     Indication: PAIN
     Dosage: 1 TABLET, TID
     Route: 048
     Dates: start: 20090101, end: 20090301
  7. TRIFLUOPERAZINE HCL [Suspect]
     Indication: SCHIZOPHRENIA
     Dosage: 1 TABLET, BID
     Route: 048
     Dates: end: 20090801

REACTIONS (2)
  - TOXICITY TO VARIOUS AGENTS [None]
  - DRUG LEVEL INCREASED [None]
